FAERS Safety Report 24794230 (Version 1)
Quarter: 2024Q4

REPORT INFORMATION
  Report Type: Spontaneous
  Country: CA (occurrence: CA)
  Receive Date: 20241231
  Receipt Date: 20241231
  Transmission Date: 20250115
  Serious: Yes (Hospitalization)
  Sender: B BRAUN
  Company Number: CA-B.Braun Medical Inc.-2168116

PATIENT
  Age: 78 Year
  Sex: Male

DRUGS (28)
  1. POTASSIUM CHLORIDE [Suspect]
     Active Substance: POTASSIUM CHLORIDE
  2. SEMAGLUTIDE [Suspect]
     Active Substance: SEMAGLUTIDE
  3. ULTIBRO BREEZHALER [Concomitant]
  4. TRESIBA [Concomitant]
     Active Substance: INSULIN DEGLUDEC
  5. THEOPHYLLINE [Concomitant]
     Active Substance: THEOPHYLLINE
  6. TAMSULOSIN [Concomitant]
     Active Substance: TAMSULOSIN
  7. SENNA [Concomitant]
     Active Substance: SENNA LEAF\SENNOSIDES\SENNOSIDES A AND B
  8. ALBUTEROL [Concomitant]
     Active Substance: ALBUTEROL
  9. QUETIAPINE [Concomitant]
     Active Substance: QUETIAPINE
  10. PRIMIDONE [Concomitant]
     Active Substance: PRIMIDONE
  11. PREGABALIN [Concomitant]
     Active Substance: PREGABALIN
  12. PANTOPRAZOLE [Concomitant]
     Active Substance: PANTOPRAZOLE
  13. OXYCODONE [Concomitant]
     Active Substance: OXYCODONE
  14. NITROGLYCERIN [Concomitant]
     Active Substance: NITROGLYCERIN
  15. MYRBETRIQ [Concomitant]
     Active Substance: MIRABEGRON
  16. METFORMIN [Concomitant]
     Active Substance: METFORMIN HYDROCHLORIDE
  17. LEVOTHYROXINE [Concomitant]
     Active Substance: LEVOTHYROXINE
  18. Levodopa Carbidopa 200/50 [Concomitant]
  19. HUMALOG [Concomitant]
     Active Substance: INSULIN LISPRO
  20. FUROSEMIDE [Concomitant]
     Active Substance: FUROSEMIDE
  21. ELIQUIS [Concomitant]
     Active Substance: APIXABAN
  22. DULOXETINE [Concomitant]
     Active Substance: DULOXETINE
  23. ATORVASTATIN [Concomitant]
     Active Substance: ATORVASTATIN
  24. ARIPIPRAZOLE [Concomitant]
     Active Substance: ARIPIPRAZOLE
  25. Antiphlogistine Rub A535 [Concomitant]
  26. AMLODIPINE [Concomitant]
     Active Substance: AMLODIPINE BESYLATE
  27. ALLOPURINOL [Concomitant]
     Active Substance: ALLOPURINOL
  28. ACETAMINOPHEN [Concomitant]
     Active Substance: ACETAMINOPHEN

REACTIONS (2)
  - Hyperkalaemia [Recovered/Resolved]
  - Acute kidney injury [Recovered/Resolved]
